FAERS Safety Report 6232936-3 (Version None)
Quarter: 2009Q2

REPORT INFORMATION
  Report Type: 
  Country: None (occurrence: None)
  Receive Date: 20090617
  Receipt Date: 20090610
  Transmission Date: 20091009
  Serious: Yes (Other)
  Sender: FDA-Public Use
  Company Number: US-ASTRAZENECA-2009UW14880

PATIENT
  Age: 680 Month
  Sex: Female
  Weight: 72.6 kg

DRUGS (7)
  1. ARIMIDEX [Suspect]
     Indication: BREAST CANCER STAGE II
     Route: 048
     Dates: start: 20041101
  2. GLUMETZA [Concomitant]
  3. NEXIUM [Concomitant]
     Route: 048
  4. COUMADIN [Concomitant]
     Dates: start: 20080501
  5. SYNTHROID [Concomitant]
     Dates: start: 20080501
  6. LICORICE [Concomitant]
  7. HERBAL [Concomitant]
     Indication: SUPPLEMENTATION THERAPY

REACTIONS (2)
  - CONTRALATERAL BREAST CANCER [None]
  - THROMBOSIS [None]
